FAERS Safety Report 10404621 (Version 1)
Quarter: 2014Q2

REPORT INFORMATION
  Report Type: Spontaneous
  Country: GB (occurrence: None)
  Receive Date: 20140604
  Receipt Date: 20140604
  Transmission Date: 20141212
  Serious: Yes (Life-Threatening)
  Sender: FDA-Public Use
  Company Number: 2014GMK008980

PATIENT
  Age: 24 Year
  Sex: Female

DRUGS (7)
  1. MONTELUKAST [Suspect]
     Indication: PRODUCT USED FOR UNKNOWN INDICATION
  2. LEVETIRACETAM [Suspect]
     Indication: PRODUCT USED FOR UNKNOWN INDICATION
  3. PRIADEL [Suspect]
     Indication: PRODUCT USED FOR UNKNOWN INDICATION
  4. RANITIDINE (RANITIDINE) [Suspect]
     Indication: PRODUCT USED FOR UNKNOWN INDICATION
  5. SERETIDE [Suspect]
     Indication: PRODUCT USED FOR UNKNOWN INDICATION
  6. SODIUM VALPROATE (VALPROATE SODIUM) [Suspect]
     Indication: PRODUCT USED FOR UNKNOWN INDICATION
  7. VENTOLIN HFA (SALBUTAMOL SULFATE) [Suspect]
     Indication: PRODUCT USED FOR UNKNOWN INDICATION

REACTIONS (1)
  - Angioedema [None]
